FAERS Safety Report 4366249-1 (Version None)
Quarter: 2004Q2

REPORT INFORMATION
  Report Type: 
  Country: None (occurrence: None)
  Receive Date: 20040527
  Receipt Date: 20040519
  Transmission Date: 20050107
  Serious: Yes (Death, Hospitalization)
  Sender: FDA-Public Use
  Company Number: FR-JNJFOC-20040504420

PATIENT
  Age: 58 Year
  Sex: Male

DRUGS (8)
  1. TOPALGIC [Suspect]
     Route: 049
  2. TOPALGIC [Suspect]
     Indication: PAIN
     Route: 049
  3. DI-ANTALVIC [Concomitant]
     Route: 049
  4. DI-ANTALVIC [Concomitant]
     Route: 049
  5. FONZYLANE [Concomitant]
     Route: 058
  6. FRAXODI [Concomitant]
     Route: 058
  7. TERCIAN [Concomitant]
     Route: 049
  8. FONZYLANE [Concomitant]
     Route: 049

REACTIONS (3)
  - EYELID OEDEMA [None]
  - PRURITUS [None]
  - RASH VESICULAR [None]
